FAERS Safety Report 24828800 (Version 1)
Quarter: 2025Q1

REPORT INFORMATION
  Report Type: Report from Study
  Country: US (occurrence: US)
  Receive Date: 20250110
  Receipt Date: 20250110
  Transmission Date: 20250408
  Serious: No
  Sender: ACADIA PHARMACEUTICALS
  Company Number: US-ACADIA PHARMACEUTICALS INC.-ACA-2025-PIM-000167

PATIENT
  Age: 62 Year
  Sex: Male

DRUGS (7)
  1. NUPLAZID [Suspect]
     Active Substance: PIMAVANSERIN TARTRATE
     Indication: Parkinson^s disease
     Dosage: 34 MILLIGRAM, QD
     Route: 048
     Dates: start: 20240808, end: 20241215
  2. SELEGILINE [Concomitant]
     Active Substance: SELEGILINE
  3. ROPINIROLE [Concomitant]
     Active Substance: ROPINIROLE
  4. SINEMET [Concomitant]
     Active Substance: CARBIDOPA\LEVODOPA
  5. RIVASTIGMINE [Concomitant]
     Active Substance: RIVASTIGMINE
  6. CLONAZEPAM [Concomitant]
     Active Substance: CLONAZEPAM
  7. GABAPENTIN [Concomitant]
     Active Substance: GABAPENTIN

REACTIONS (3)
  - Anxiety [Recovered/Resolved]
  - Paranoia [Recovered/Resolved]
  - Memory impairment [Recovered/Resolved]

NARRATIVE: CASE EVENT DATE: 20241107
